FAERS Safety Report 7389366-0 (Version None)
Quarter: 2011Q2

REPORT INFORMATION
  Report Type: 
  Country: None (occurrence: None)
  Receive Date: 20110401
  Receipt Date: 20110322
  Transmission Date: 20111010
  Serious: Yes (Hospitalization)
  Sender: FDA-Public Use
  Company Number: B0707486A

PATIENT
  Age: 70 Year
  Sex: Female

DRUGS (7)
  1. TILCOTIL [Suspect]
     Indication: PAIN
     Dosage: 20MG PER DAY
     Route: 048
     Dates: end: 20110118
  2. TAREG [Concomitant]
     Dosage: 80MG PER DAY
     Route: 065
  3. ACETAMINOPHEN W/ CODEINE [Suspect]
     Indication: PAIN
     Dosage: 1G PER DAY
     Route: 048
     Dates: start: 20100601
  4. CYMBALTA [Concomitant]
     Route: 065
     Dates: start: 20100601
  5. LEXOMIL [Suspect]
     Indication: ANXIETY
     Dosage: 12MG PER DAY
     Route: 048
  6. MESTINON [Concomitant]
     Dosage: 2UNIT PER DAY
     Route: 065
  7. ROPINIROLE HYDROCHLORIDE [Suspect]
     Indication: RESTLESS LEGS SYNDROME
     Dosage: 3MG PER DAY
     Route: 048
     Dates: end: 20110125

REACTIONS (11)
  - MEMORY IMPAIRMENT [None]
  - COGNITIVE DISORDER [None]
  - DIZZINESS [None]
  - PARAESTHESIA [None]
  - AMNESIA [None]
  - HEADACHE [None]
  - LEUKOENCEPHALOPATHY [None]
  - SOMNOLENCE [None]
  - MOTOR DYSFUNCTION [None]
  - ROAD TRAFFIC ACCIDENT [None]
  - CEREBRAL SMALL VESSEL ISCHAEMIC DISEASE [None]
